FAERS Safety Report 12252940 (Version 2)
Quarter: 2016Q2

REPORT INFORMATION
  Report Type: Spontaneous
  Country: US (occurrence: US)
  Receive Date: 20160411
  Receipt Date: 20160420
  Transmission Date: 20160815
  Serious: Yes (Hospitalization)
  Sender: FDA-Public Use
  Company Number: US-UNITED THERAPEUTICS-UNT-2016-004438

PATIENT
  Age: 79 Year
  Sex: Female
  Weight: 77.98 kg

DRUGS (2)
  1. TYVASO [Suspect]
     Active Substance: TREPROSTINIL
     Dosage: UNK
  2. TYVASO [Suspect]
     Active Substance: TREPROSTINIL
     Indication: PULMONARY HYPERTENSION
     Dosage: 18-54 ?G, QID
     Dates: start: 20141027

REACTIONS (5)
  - Asthma [Unknown]
  - Device issue [Unknown]
  - Lower respiratory tract infection [Unknown]
  - Nephropathy [Unknown]
  - Therapy cessation [Unknown]

NARRATIVE: CASE EVENT DATE: 201603
